FAERS Safety Report 8554886-X (Version None)
Quarter: 2012Q3

REPORT INFORMATION
  Report Type: 
  Country: None (occurrence: None)
  Receive Date: 20120725
  Receipt Date: 20120725
  Transmission Date: 20120928
  Serious: Yes (Hospitalization)
  Sender: FDA-Public Use
  Company Number: None

PATIENT
  Sex: Female

DRUGS (2)
  1. ARTICHOKES [Concomitant]
  2. MEANINGFUL BEAUTY ANTI-AGING CREAM [Suspect]

REACTIONS (1)
  - PNEUMONIA [None]
